FAERS Safety Report 7910777-6 (Version None)
Quarter: 2011Q4

REPORT INFORMATION
  Report Type: 
  Country: None (occurrence: None)
  Receive Date: 20111112
  Receipt Date: 20111102
  Transmission Date: 20120403
  Serious: Yes (Other)
  Sender: FDA-Public Use
  Company Number: US-ASTRAZENECA-2011SE66779

PATIENT
  Age: 68 Year
  Sex: Male

DRUGS (15)
  1. POTASSIUM CHLORIDE [Concomitant]
     Route: 048
  2. SIMVASTATIN [Concomitant]
     Route: 048
  3. ASPIRIN [Concomitant]
  4. SYMBICORT [Suspect]
     Dosage: 160 MCGS-4.5 MCG  TWO PUFFS TWO TIMES A DAY
     Route: 055
  5. ALBUTEROL SULFATE [Concomitant]
     Dosage: EVERY FOUR TO SIX HOURS AS NEEDED
  6. PROAIR HFA [Concomitant]
     Dosage: TWO PUFFS EVERY FOUR HOURS AS NEEDED
  7. OMEPRAZOLE [Suspect]
     Route: 048
  8. FUROSEMIDE [Concomitant]
     Route: 048
  9. OMEPRAZOLE [Suspect]
     Route: 048
  10. DILT XR [Concomitant]
     Route: 048
  11. SPIRIVA [Concomitant]
     Dosage: ONE PUFF AS DIRECTED ONCE A DAY
  12. ALCOHOL [Concomitant]
     Dosage: SWAB
  13. KLOR-CON [Concomitant]
     Route: 048
  14. ALLOPURINOL [Concomitant]
     Route: 048
  15. LOSARTAN [Concomitant]
     Route: 048

REACTIONS (12)
  - DYSLIPIDAEMIA [None]
  - GASTROOESOPHAGEAL REFLUX DISEASE [None]
  - OBESITY [None]
  - SPINAL COLUMN STENOSIS [None]
  - RENAL FAILURE [None]
  - CHRONIC OBSTRUCTIVE PULMONARY DISEASE [None]
  - RENAL DISORDER [None]
  - BACK PAIN [None]
  - GOUT [None]
  - HYPERTENSION [None]
  - GLUCOSE TOLERANCE IMPAIRED [None]
  - PRESYNCOPE [None]
